FAERS Safety Report 8787802 (Version 1)
Quarter: 2012Q4

REPORT INFORMATION
  Report Type: 
  Country: US (occurrence: US)
  Receive Date: 20120914
  Receipt Date: 20120914
  Transmission Date: 20130627
  Serious: Yes (Hospitalization, Other)
  Sender: FDA-Public Use
  Company Number: PHHY2012US078754

PATIENT
  Age: 80 Year
  Sex: Male

DRUGS (1)
  1. CIPROFLOXACIN [Suspect]
     Dosage: 750 mg, UNK

REACTIONS (9)
  - Bacteraemia [Recovered/Resolved]
  - Fatigue [Recovered/Resolved]
  - Pyrexia [Recovered/Resolved]
  - Hyperhidrosis [Recovered/Resolved]
  - Dizziness [Recovered/Resolved]
  - Cardiac valve vegetation [Recovered/Resolved]
  - Cerebral infarction [Recovered/Resolved]
  - Drug resistance [Unknown]
  - Anaemia [Recovered/Resolved]
